FAERS Safety Report 21960625 (Version 9)
Quarter: 2024Q2

REPORT INFORMATION
  Report Type: Report from Study
  Country: US (occurrence: US)
  Receive Date: 20230207
  Receipt Date: 20240417
  Transmission Date: 20240716
  Serious: No
  Sender: FDA-Public Use
  Company Number: US-002147023-NVSC2023US020941

PATIENT
  Sex: Male

DRUGS (1)
  1. KESIMPTA [Suspect]
     Active Substance: OFATUMUMAB
     Indication: Multiple sclerosis
     Dosage: 20 MG, QMO
     Route: 058
     Dates: start: 20220426

REACTIONS (5)
  - Back pain [Not Recovered/Not Resolved]
  - Nerve compression [Unknown]
  - Needle issue [Not Recovered/Not Resolved]
  - Device malfunction [Unknown]
  - Product storage error [Recovered/Resolved]
